FAERS Safety Report 20625086 (Version 3)
Quarter: 2022Q2

REPORT INFORMATION
  Report Type: Spontaneous
  Country: AR (occurrence: AR)
  Receive Date: 20220323
  Receipt Date: 20220502
  Transmission Date: 20220721
  Serious: Yes (Other)
  Sender: FDA-Public Use
  Company Number: AR-PFIZER INC-202200409998

PATIENT
  Age: 55 Year
  Sex: Female

DRUGS (1)
  1. ENBREL [Suspect]
     Active Substance: ETANERCEPT
     Indication: Rheumatoid arthritis
     Dosage: 50 MG, WEEKLY (1 DOSE PER WEEK)
     Route: 065
     Dates: start: 20090306

REACTIONS (6)
  - Fall [Recovered/Resolved]
  - Ligament injury [Recovered/Resolved]
  - Toothache [Recovered/Resolved]
  - Nervousness [Unknown]
  - Suspiciousness [Unknown]
  - Cyst [Recovered/Resolved]
